FAERS Safety Report 7450064-6 (Version None)
Quarter: 2011Q2

REPORT INFORMATION
  Report Type: 
  Country: None (occurrence: None)
  Receive Date: 20110421
  Receipt Date: 20110412
  Transmission Date: 20111010
  Serious: Yes (Other)
  Sender: FDA-Public Use
  Company Number: FK201100741

PATIENT
  Age: 22 Year
  Sex: Male

DRUGS (2)
  1. CLOFARABINE (CLOFARABINE) (CLOFARABINE) [Suspect]
     Indication: ACUTE LYMPHOCYTIC LEUKAEMIA
     Dosage: 40 MG/M2, 1 D
  2. CYTARABINE [Suspect]
     Indication: ACUTE LYMPHOCYTIC LEUKAEMIA
     Dosage: 20 MG/M2, FOR 7 DAYS, SUBCUTANEOUS
     Route: 058

REACTIONS (7)
  - PALMAR-PLANTAR ERYTHRODYSAESTHESIA SYNDROME [None]
  - COLITIS [None]
  - PYREXIA [None]
  - CELL DEATH [None]
  - PANCYTOPENIA [None]
  - STOMATITIS [None]
  - PAIN [None]
